FAERS Safety Report 11159483 (Version 1)
Quarter: 2015Q2

REPORT INFORMATION
  Report Type: Spontaneous
  Country: US (occurrence: US)
  Receive Date: 20150603
  Receipt Date: 20150603
  Transmission Date: 20150821
  Serious: No
  Sender: FDA-Public Use
  Company Number: US-PFIZER INC-2015182449

PATIENT
  Age: 95 Year
  Sex: Female

DRUGS (2)
  1. ALEVE [Suspect]
     Active Substance: NAPROXEN SODIUM
     Dosage: 200 MG, UNK
     Dates: start: 20150526
  2. IBUPROFEN. [Suspect]
     Active Substance: IBUPROFEN
     Dosage: 2 EACH 200MG
     Dates: start: 20150526

REACTIONS (2)
  - Asthenia [Recovering/Resolving]
  - Nausea [Recovering/Resolving]
